FAERS Safety Report 10664616 (Version 1)
Quarter: 2014Q4

REPORT INFORMATION
  Report Type: Spontaneous
  Country: ES (occurrence: None)
  Receive Date: 20141217
  Receipt Date: 20141217
  Transmission Date: 20150529
  Serious: Yes (Other)
  Sender: FDA-Public Use
  Company Number: 2663211

PATIENT
  Age: 38 Year
  Sex: Male

DRUGS (2)
  1. PIPERACILLIN AND TAZOBACTAM [Suspect]
     Active Substance: PIPERACILLIN SODIUM\TAZOBACTAM SODIUM
     Indication: CHOLANGITIS
     Dosage: NOT REPORTED, UNKNOWN, UNKNOWN
  2. SUNITINIB [Concomitant]
     Active Substance: SUNITINIB

REACTIONS (1)
  - Drug reaction with eosinophilia and systemic symptoms [None]
